FAERS Safety Report 9350172 (Version 2)
Quarter: 2013Q2

REPORT INFORMATION
  Report Type: Spontaneous
  Country: JP (occurrence: JP)
  Receive Date: 20130617
  Receipt Date: 20130618
  Transmission Date: 20140414
  Serious: Yes (Hospitalization)
  Sender: FDA-Public Use
  Company Number: JP-ROCHE-1235887

PATIENT
  Age: 7 Decade
  Sex: Female

DRUGS (3)
  1. AVASTIN [Suspect]
     Indication: BILE DUCT ADENOSQUAMOUS CARCINOMA
     Dosage: DOSAGE IS UNCERTAIN.
     Route: 041
  2. AVASTIN [Suspect]
     Indication: OFF LABEL USE
  3. GEMCITABINE [Concomitant]
     Dosage: DOSAGE IS UNCERTAIN
     Route: 041

REACTIONS (3)
  - Ascites [Recovering/Resolving]
  - Gastrointestinal obstruction [Unknown]
  - Chronic respiratory failure [Unknown]
